FAERS Safety Report 12820909 (Version 2)
Quarter: 2016Q4

REPORT INFORMATION
  Report Type: Report from Study
  Country: US (occurrence: US)
  Receive Date: 20161006
  Receipt Date: 20161031
  Transmission Date: 20170207
  Serious: Yes (Other)
  Sender: FDA-Public Use
  Company Number: US-BAYER-2016-111730

PATIENT
  Age: 72 Year
  Sex: Female
  Weight: 72 kg

DRUGS (10)
  1. ADEMPAS [Suspect]
     Active Substance: RIOCIGUAT
     Indication: PULMONARY ARTERIAL HYPERTENSION
     Dosage: 1 MG, TID
     Route: 048
  2. ADEMPAS [Suspect]
     Active Substance: RIOCIGUAT
     Indication: PULMONARY ARTERIAL HYPERTENSION
     Dosage: 1 MG, TID
     Route: 048
  3. ADEMPAS [Suspect]
     Active Substance: RIOCIGUAT
     Indication: PULMONARY ARTERIAL HYPERTENSION
     Dosage: 0.5 MG, TID
     Route: 048
  4. ADEMPAS [Suspect]
     Active Substance: RIOCIGUAT
     Indication: PULMONARY ARTERIAL HYPERTENSION
     Dosage: 1 MG, TID
     Route: 048
  5. ADEMPAS [Suspect]
     Active Substance: RIOCIGUAT
     Indication: PULMONARY ARTERIAL HYPERTENSION
     Dosage: UNK
     Dates: start: 20160603
  6. ADEMPAS [Suspect]
     Active Substance: RIOCIGUAT
     Indication: PULMONARY ARTERIAL HYPERTENSION
     Dosage: 0.5 MG, TID
     Route: 048
  7. ADEMPAS [Suspect]
     Active Substance: RIOCIGUAT
     Indication: PULMONARY ARTERIAL HYPERTENSION
     Dosage: 0.5 MG, TID
     Route: 048
  8. LETAIRIS [Concomitant]
     Active Substance: AMBRISENTAN
     Dosage: UNK
  9. OPSUMIT [Concomitant]
     Active Substance: MACITENTAN
     Dosage: UNK
  10. APIXABAN [Concomitant]
     Active Substance: APIXABAN
     Dosage: UNK

REACTIONS (32)
  - Nephrolithiasis [None]
  - Cholelithiasis [None]
  - Asthenia [None]
  - Abdominal distension [None]
  - Early satiety [None]
  - Localised oedema [None]
  - Nasal congestion [Unknown]
  - Blood pressure diastolic decreased [None]
  - Adverse event [None]
  - Dyspnoea [None]
  - Oedema [None]
  - Upper respiratory tract congestion [None]
  - Hypotension [None]
  - Oedema [Unknown]
  - Fall [Unknown]
  - Pruritus [None]
  - Dyspnoea [Unknown]
  - Fluid overload [None]
  - Gastrointestinal disorder [None]
  - Urinary tract infection [None]
  - Nasal congestion [Recovered/Resolved]
  - Dyspepsia [None]
  - Ocular discomfort [None]
  - Malaise [None]
  - Nasal congestion [None]
  - Weight increased [None]
  - Oedema peripheral [None]
  - Vision blurred [None]
  - Sinus congestion [None]
  - Insomnia [None]
  - Oxygen saturation decreased [None]
  - Blood pressure decreased [None]

NARRATIVE: CASE EVENT DATE: 20160706
